FAERS Safety Report 6264490-4 (Version None)
Quarter: 2009Q3

REPORT INFORMATION
  Report Type: 
  Country: None (occurrence: None)
  Receive Date: 20090710
  Receipt Date: 20090701
  Transmission Date: 20100115
  Serious: Yes (Death, Other)
  Sender: FDA-Public Use
  Company Number: US-PURDUE-USA-2009-0038908

PATIENT
  Age: 27 Year
  Sex: Male

DRUGS (1)
  1. OXYCODONE HCL [Suspect]
     Indication: DRUG ABUSE

REACTIONS (4)
  - COMPLETED SUICIDE [None]
  - DRUG ABUSE [None]
  - DRUG DEPENDENCE [None]
  - GUN SHOT WOUND [None]
